FAERS Safety Report 4664807-8 (Version None)
Quarter: 2005Q2

REPORT INFORMATION
  Report Type: 
  Country: None (occurrence: None)
  Receive Date: 20050516
  Receipt Date: 20050504
  Transmission Date: 20051028
  Serious: Yes (Hospitalization)
  Sender: FDA-Public Use
  Company Number: 2005070930

PATIENT
  Age: 58 Year
  Sex: Female

DRUGS (6)
  1. CELEBREX [Suspect]
     Indication: OSTEOARTHRITIS
     Dosage: 200 MG (200 MG, 1 IN 1 D), ORAL
     Route: 048
     Dates: start: 20041001, end: 20050313
  2. ATORVASTATIN CALCIUM [Concomitant]
  3. CITALOPRAM HYDROBROMIDE [Concomitant]
  4. TOLTERODINE TARTRATE [Concomitant]
  5. RISPERDAL [Concomitant]
  6. ESTRADIOL VALERATE (ESTRADIOL VALERATE) [Concomitant]

REACTIONS (1)
  - VASCULITIS NECROTISING [None]
